FAERS Safety Report 12645551 (Version 1)
Quarter: 2016Q3

REPORT INFORMATION
  Report Type: Spontaneous
  Country: DE (occurrence: DE)
  Receive Date: 20160811
  Receipt Date: 20160811
  Transmission Date: 20161109
  Serious: Yes (Congenital Anomaly)
  Sender: FDA-Public Use
  Company Number: DE-TEVA-681759GER

PATIENT
  Age: 0 Year
  Sex: Male
  Weight: 2.89 kg

DRUGS (8)
  1. DOPEGYT [Suspect]
     Active Substance: METHYLDOPA
     Indication: HYPERTENSION
     Dosage: 250 MILLIGRAM DAILY;
     Route: 064
     Dates: start: 20150521, end: 20160212
  2. FLUTIDE [Concomitant]
     Active Substance: FLUTICASONE PROPIONATE
     Indication: ASTHMA
     Route: 064
  3. FAMENITA [Concomitant]
     Active Substance: PROGESTERONE
     Indication: INFERTILITY FEMALE
     Route: 064
  4. ESTRIFAM [Concomitant]
     Active Substance: ESTRADIOL
     Indication: INFERTILITY FEMALE
     Route: 064
  5. XANAFLU [Concomitant]
     Active Substance: INFLUENZA VIRUS VACCINE
     Indication: IMMUNISATION
     Route: 064
     Dates: start: 20151207, end: 20151207
  6. NIFEDIPIN 20 MG RETARD [Suspect]
     Active Substance: NIFEDIPINE
     Indication: HYPERTENSION
     Dosage: 20 MILLIGRAM DAILY;
     Route: 064
     Dates: start: 20150521, end: 20160212
  7. PANTOPRAZOL [Concomitant]
     Active Substance: PANTOPRAZOLE SODIUM
     Indication: GASTRITIS
     Route: 064
  8. FEMIBION (NEM) [Concomitant]
     Indication: PROPHYLAXIS OF NEURAL TUBE DEFECT
     Route: 064
     Dates: start: 20150604, end: 20160212

REACTIONS (3)
  - Atrial septal defect [Unknown]
  - Ventricular septal defect [Unknown]
  - Foetal exposure during pregnancy [Unknown]
